FAERS Safety Report 9566006 (Version 3)
Quarter: 2013Q4

REPORT INFORMATION
  Report Type: Report from Study
  Country: BR (occurrence: BR)
  Receive Date: 20130930
  Receipt Date: 20131107
  Transmission Date: 20140711
  Serious: Yes (Other)
  Sender: FDA-Public Use
  Company Number: PHHY2013BR108898

PATIENT
  Age: 79 Year
  Sex: Female
  Weight: 81 kg

DRUGS (9)
  1. FUROSEMIDE [Concomitant]
     Dosage: 1 DF (1 TABLET), DAILY
     Route: 048
     Dates: start: 2010
  2. AMIORON [Concomitant]
     Dosage: 1 DF (1 TABLET), DAILY
     Route: 048
     Dates: start: 2010
  3. CARVEDILOL [Concomitant]
     Dosage: 2 DF (2 TABLETS), DAILY
     Route: 048
     Dates: start: 2010
  4. LOSARTAN POTASSIUM [Concomitant]
     Dosage: 1 DF (1 TABLET), DALY
     Route: 048
     Dates: start: 2010
  5. SOMALGIN [Concomitant]
     Indication: MYOCARDIAL INFARCTION
     Dosage: 1 DF (1 TABLET), DAILY
     Route: 048
     Dates: start: 2010
  6. SPIRONOLACTONE [Concomitant]
     Dosage: UNK UKN, UNK
     Dates: start: 2009
  7. ALDACTONE [Concomitant]
     Dosage: 1 DF (1 TABLET), DAILY
     Route: 048
     Dates: start: 2010
  8. ACLASTA [Suspect]
     Indication: OSTEOPOROSIS
     Dosage: 5 MG, ANNUALLY
     Route: 042
     Dates: start: 2011
  9. LANSOPRAZOLE [Concomitant]
     Indication: PROPHYLAXIS
     Dosage: 1 DF (1 TABLET), DAILY
     Route: 048
     Dates: start: 2011

REACTIONS (5)
  - Lower limb fracture [Recovered/Resolved]
  - Foot fracture [Recovered/Resolved]
  - Local swelling [Recovered/Resolved]
  - Ligament sprain [Recovered/Resolved]
  - Malaise [Recovered/Resolved]
